FAERS Safety Report 10201530 (Version 2)
Quarter: 2014Q2

REPORT INFORMATION
  Report Type: Spontaneous
  Country: IT (occurrence: IT)
  Receive Date: 20140528
  Receipt Date: 20140610
  Transmission Date: 20141212
  Serious: Yes (Other)
  Sender: FDA-Public Use
  Company Number: IT-ACTAVIS-2014-10725

PATIENT
  Age: 42 Year
  Sex: Female

DRUGS (2)
  1. OXALIPLATIN (UNKNOWN) [Suspect]
     Indication: OVARIAN CANCER METASTATIC
     Dosage: 120 MG, CYCLICAL
     Route: 042
     Dates: start: 20140128, end: 20140512
  2. ENDOXAN                            /00021101/ [Suspect]
     Indication: OVARIAN CANCER METASTATIC
     Dosage: 1020 MG, CYCLICAL
     Route: 042
     Dates: start: 20140128, end: 20140512

REACTIONS (4)
  - Loss of consciousness [Recovered/Resolved]
  - Tremor [Recovered/Resolved]
  - Vomiting [Recovered/Resolved]
  - Nausea [Recovered/Resolved]
